FAERS Safety Report 13357722 (Version 4)
Quarter: 2017Q2

REPORT INFORMATION
  Report Type: Spontaneous
  Country: US (occurrence: US)
  Receive Date: 20170322
  Receipt Date: 20170421
  Transmission Date: 20170830
  Serious: No
  Sender: FDA-Public Use
  Company Number: US-BRISTOL-MYERS SQUIBB COMPANY-BMS-2017-021411

PATIENT
  Sex: Female

DRUGS (1)
  1. NULOJIX [Suspect]
     Active Substance: BELATACEPT
     Indication: KIDNEY TRANSPLANT REJECTION
     Dosage: 650 MG, Q4WK
     Route: 042
     Dates: start: 20151118

REACTIONS (1)
  - Off label use [Unknown]
